FAERS Safety Report 5578679-0 (Version None)
Quarter: 2007Q4

REPORT INFORMATION
  Report Type: 
  Country: None (occurrence: None)
  Receive Date: 20071227
  Receipt Date: 20071227
  Transmission Date: 20080405
  Serious: Yes (Hospitalization)
  Sender: FDA-Public Use
  Company Number: None

PATIENT
  Age: 39 Year
  Sex: Female
  Weight: 63.5036 kg

DRUGS (1)
  1. LAMISIL [Suspect]
     Indication: FUNGAL INFECTION
     Dosage: 250 MG TABLET ONCE A DAY
     Dates: start: 20071026, end: 20071127

REACTIONS (3)
  - DYSPNOEA [None]
  - SYNCOPE [None]
  - URTICARIA [None]
